FAERS Safety Report 12244712 (Version 1)
Quarter: 2016Q2

REPORT INFORMATION
  Report Type: Spontaneous
  Country: US (occurrence: None)
  Receive Date: 20160406
  Receipt Date: 20160406
  Transmission Date: 20160815
  Serious: No
  Sender: FDA-Public Use
  Company Number: None

PATIENT
  Age: 81 Year
  Sex: Male
  Weight: 95.26 kg

DRUGS (9)
  1. FINASTERIDE. [Concomitant]
     Active Substance: FINASTERIDE
  2. LISINOPRIL. [Concomitant]
     Active Substance: LISINOPRIL
  3. IDOMETHACIN [Concomitant]
  4. HYDROCLOROTHIAZIDE [Concomitant]
  5. XARELTO [Suspect]
     Active Substance: RIVAROXABAN
     Indication: ATRIAL FIBRILLATION
     Dosage: 15 MG 30 - 1 DAILY 1 DAILY MOUTH
     Route: 048
     Dates: start: 20160309, end: 20160323
  6. TAMSULOSIN [Concomitant]
     Active Substance: TAMSULOSIN
  7. ALEVE [Concomitant]
     Active Substance: NAPROXEN SODIUM
  8. PRUNE JUICE [Concomitant]
  9. BAYER LOW DOSE ASPIRIN [Concomitant]

REACTIONS (3)
  - Limb discomfort [None]
  - Feeling hot [None]
  - Gait disturbance [None]

NARRATIVE: CASE EVENT DATE: 20160318
